FAERS Safety Report 9000802 (Version 1)
Quarter: 2012Q4

REPORT INFORMATION
  Report Type: Spontaneous
  Country: US (occurrence: None)
  Receive Date: 20121226
  Receipt Date: 20121226
  Transmission Date: 20130627
  Serious: Yes (Death)
  Sender: FDA-Public Use
  Company Number: DSA_59840_2012

PATIENT
  Age: 51 Year
  Sex: Male

DRUGS (7)
  1. XENAZINE 25 MG (NOT SPECIFIED) [Suspect]
     Indication: HUNTINGTON^S DISEASE
     Route: 048
     Dates: start: 20110411
  2. ZOFRAN /00955301/ [Concomitant]
  3. ZOLOFT [Concomitant]
  4. ZYPREXA [Concomitant]
  5. TRAZODONE [Concomitant]
  6. TYLENOL REQULAR [Concomitant]
  7. MOM [Concomitant]

REACTIONS (1)
  - General physical health deterioration [None]
